FAERS Safety Report 7722094-8 (Version None)
Quarter: 2011Q3

REPORT INFORMATION
  Report Type: 
  Country: None (occurrence: None)
  Receive Date: 20110831
  Receipt Date: 20110818
  Transmission Date: 20111222
  Serious: Yes (Hospitalization, Disabling, Other)
  Sender: FDA-Public Use
  Company Number: US-CELGENEUS-163-21880-11072430

PATIENT
  Sex: Male

DRUGS (8)
  1. AMBIEN [Concomitant]
     Route: 065
  2. ATIVAN [Concomitant]
     Route: 065
  3. FEOSOL [Concomitant]
     Route: 065
  4. PROCRIT [Concomitant]
     Route: 065
  5. TARCEVA [Concomitant]
     Route: 065
  6. REVLIMID [Suspect]
     Indication: MYELODYSPLASTIC SYNDROME
     Dosage: 25 MILLIGRAM
     Route: 048
     Dates: start: 20091201
  7. REVLIMID [Suspect]
     Dosage: 10 MILLIGRAM
     Route: 048
     Dates: start: 20100101, end: 20100101
  8. REVLIMID [Suspect]
     Dosage: 10 MILLIGRAM
     Route: 048
     Dates: start: 20110401

REACTIONS (2)
  - CONVULSION [None]
  - LUNG CANCER METASTATIC [None]
